FAERS Safety Report 17277460 (Version 1)
Quarter: 2020Q1

REPORT INFORMATION
  Report Type: Spontaneous
  Country: US (occurrence: US)
  Receive Date: 20200116
  Receipt Date: 20200116
  Transmission Date: 20200409
  Serious: Yes (Hospitalization)
  Sender: FDA-Public Use
  Company Number: None

PATIENT
  Sex: Female

DRUGS (12)
  1. TOPIRAMATE. [Concomitant]
     Active Substance: TOPIRAMATE
  2. ATORVASTATIN [Concomitant]
     Active Substance: ATORVASTATIN
  3. APAP/CODEINE [Concomitant]
     Active Substance: ACETAMINOPHEN\CODEINE PHOSPHATE
  4. PREDNISONE. [Concomitant]
     Active Substance: PREDNISONE
  5. LATANOPROST. [Concomitant]
     Active Substance: LATANOPROST
  6. TRAZODONE [Concomitant]
     Active Substance: TRAZODONE HYDROCHLORIDE
  7. TIMOLOL. [Concomitant]
     Active Substance: TIMOLOL
  8. LEVETIRACETA [Concomitant]
  9. OMEPRAZOLE. [Concomitant]
     Active Substance: OMEPRAZOLE
  10. DICLOFENAC [Concomitant]
     Active Substance: DICLOFENAC
  11. CIMZIA [Suspect]
     Active Substance: CERTOLIZUMAB PEGOL
     Indication: CROHN^S DISEASE
     Dosage: ?          OTHER FREQUENCY:EVERY MONTH;?
     Route: 058
     Dates: start: 20190124
  12. FAMOTIDINE. [Concomitant]
     Active Substance: FAMOTIDINE

REACTIONS (7)
  - Vomiting [None]
  - Pain [None]
  - Abdominal pain [None]
  - Haematochezia [None]
  - Nausea [None]
  - Colitis [None]
  - Muscle spasms [None]
